FAERS Safety Report 8570335-X (Version None)
Quarter: 2012Q3

REPORT INFORMATION
  Report Type: 
  Country: None (occurrence: None)
  Receive Date: 20120803
  Receipt Date: 20120731
  Transmission Date: 20120928
  Serious: Yes (Death, Hospitalization, Other)
  Sender: FDA-Public Use
  Company Number: NZ-B.I. PHARMACEUTICALS,INC./RIDGEFIELD-2012-AU-01330AU

PATIENT
  Sex: Female

DRUGS (4)
  1. FELODIPINE [Concomitant]
     Dosage: 5 MG
  2. SIMVASTATIN [Concomitant]
     Dosage: 20 MG
  3. METOPROLOL SUCCINATE [Concomitant]
     Dosage: 71.25 MG
  4. PRADAXA [Suspect]
     Indication: ATRIAL FIBRILLATION
     Dosage: 220 MG

REACTIONS (11)
  - HEMIPLEGIA [None]
  - URINARY INCONTINENCE [None]
  - SYNCOPE [None]
  - CEREBRAL INFARCTION [None]
  - CONTUSION [None]
  - HEMIPARESIS [None]
  - MOBILITY DECREASED [None]
  - DYSPHAGIA [None]
  - LACERATION [None]
  - SWELLING FACE [None]
  - SKIN INJURY [None]
